FAERS Safety Report 4798145-X (Version None)
Quarter: 2005Q4

REPORT INFORMATION
  Report Type: 
  Country: None (occurrence: None)
  Receive Date: 20051006
  Receipt Date: 20051006
  Transmission Date: 20060501
  Serious: Yes (Life-Threatening)
  Sender: FDA-Public Use
  Company Number: None

PATIENT
  Age: 52 Year
  Sex: Female
  Weight: 70 kg

DRUGS (4)
  1. TACROLIMUS [Suspect]
     Indication: BONE MARROW TRANSPLANT
     Dosage: 2 MG PO BID
     Route: 048
     Dates: start: 20040515
  2. CEFEPIME [Concomitant]
  3. PREVACID [Concomitant]
  4. VORICONAZOLE [Concomitant]

REACTIONS (1)
  - BLOOD PRESSURE INCREASED [None]
